FAERS Safety Report 15368190 (Version 2)
Quarter: 2018Q3

REPORT INFORMATION
  Report Type: Spontaneous
  Country: US (occurrence: JP)
  Receive Date: 20180910
  Receipt Date: 20180924
  Transmission Date: 20181010
  Serious: Yes (Hospitalization, Other)
  Sender: FDA-Public Use
  Company Number: US-SUNOVION-2018SUN003453

PATIENT
  Sex: Male

DRUGS (1)
  1. INDACATEROL AND GLYCOPYRROLATE [Suspect]
     Active Substance: GLYCOPYRROLATE\INDACATEROL MALEATE
     Indication: EMPHYSEMA
     Dosage: UNK
     Route: 055

REACTIONS (3)
  - Chronic obstructive pulmonary disease [Unknown]
  - Lung neoplasm malignant [Unknown]
  - Nasopharyngitis [Unknown]
